FAERS Safety Report 7358147-6 (Version None)
Quarter: 2011Q1

REPORT INFORMATION
  Report Type: 
  Country: None (occurrence: None)
  Receive Date: 20110317
  Receipt Date: 20110311
  Transmission Date: 20110831
  Serious: Yes (Other)
  Sender: FDA-Public Use
  Company Number: BR-ELI_LILLY_AND_COMPANY-BR201103004028

PATIENT
  Sex: Male
  Weight: 92 kg

DRUGS (6)
  1. MEMANTINE HYDROCHLORIDE [Concomitant]
     Indication: MEMORY IMPAIRMENT
     Dosage: 10 MG, 2/D
     Route: 048
     Dates: start: 20080101
  2. DOXAZOSIN MESYLATE [Concomitant]
     Indication: PROSTATIC DISORDER
     Dosage: 2 MG, DAILY (1/D)
     Route: 048
     Dates: start: 20060101
  3. CIALIS [Suspect]
     Indication: ERECTILE DYSFUNCTION
     Dosage: 20 MG, WEEKLY (1/W)
     Route: 048
     Dates: start: 20060101, end: 20101201
  4. EUTIROX [Concomitant]
     Indication: THYROID DISORDER
     Dosage: 50 MG, EACH MORNING
     Route: 048
     Dates: start: 20090101
  5. MICARDIS [Concomitant]
     Indication: HYPERTENSION
     Dosage: UNK, EACH MORNING
     Route: 048
     Dates: start: 20090101
  6. EXELON [Concomitant]
     Indication: MEMORY IMPAIRMENT
     Dosage: 10 MG, DAILY (1/D)
     Route: 061

REACTIONS (6)
  - MACULAR DEGENERATION [None]
  - VISUAL ACUITY REDUCED [None]
  - BLINDNESS [None]
  - MACULAR OEDEMA [None]
  - RETINAL DISORDER [None]
  - VISION BLURRED [None]
